FAERS Safety Report 5445736-9 (Version None)
Quarter: 2007Q3

REPORT INFORMATION
  Report Type: 
  Country: None (occurrence: None)
  Receive Date: 20070904
  Receipt Date: 20070824
  Transmission Date: 20080115
  Serious: Yes (Other)
  Sender: FDA-Public Use
  Company Number: FEI2007-1483

PATIENT
  Age: 33 Year
  Sex: Female
  Weight: 66.9056 kg

DRUGS (3)
  1. INTRAUTERINE COPPER CONTRACEPTIVE [Suspect]
     Indication: CONTRACEPTION
     Dosage: INTRA-UTERINE
     Route: 015
     Dates: start: 20050501
  2. ADVAIR           (SERETIDE) [Concomitant]
  3. VICODIN [Concomitant]

REACTIONS (3)
  - INTERVERTEBRAL DISC DEGENERATION [None]
  - METRORRHAGIA [None]
  - VAGINAL HAEMORRHAGE [None]
